FAERS Safety Report 15871303 (Version 2)
Quarter: 2019Q2

REPORT INFORMATION
  Report Type: Report from Study
  Country: JP (occurrence: JP)
  Receive Date: 20190126
  Receipt Date: 20190420
  Transmission Date: 20190711
  Serious: Yes (Death, Life-Threatening)
  Sender: FDA-Public Use
  Company Number: JP-AMGEN-JPNCT2019012559

PATIENT
  Age: 86 Year
  Sex: Male

DRUGS (33)
  1. DARBEPOETIN ALFA [Suspect]
     Active Substance: DARBEPOETIN ALFA
     Dosage: 240 MICROGRAM
     Route: 058
     Dates: start: 20150626, end: 20150626
  2. DARBEPOETIN ALFA [Suspect]
     Active Substance: DARBEPOETIN ALFA
     Dosage: 240 MICROGRAM
     Route: 058
     Dates: start: 20151116, end: 20151116
  3. DARBEPOETIN ALFA [Suspect]
     Active Substance: DARBEPOETIN ALFA
     Dosage: 240 MICROGRAM, Q2WK
     Route: 058
     Dates: start: 20161130, end: 20170125
  4. DARBEPOETIN ALFA [Suspect]
     Active Substance: DARBEPOETIN ALFA
     Dosage: 240 MICROGRAM, Q2WK
     Route: 058
     Dates: start: 20170517, end: 20170614
  5. FEBURIC [Concomitant]
     Active Substance: FEBUXOSTAT
     Indication: HYPERURICAEMIA
     Dosage: 20 MG, UNK
     Route: 048
  6. MIYA-BM [Concomitant]
     Active Substance: CLOSTRIDIUM BUTYRICUM SPORES STRAIN M-55
     Dosage: 60 MG, UNK
     Route: 048
  7. FUROSEMIDE. [Concomitant]
     Active Substance: FUROSEMIDE
     Indication: HYPERTENSION
     Dosage: 40 MG
     Route: 048
     Dates: end: 20150831
  8. DARBEPOETIN ALFA [Suspect]
     Active Substance: DARBEPOETIN ALFA
     Dosage: 240 MICROGRAM, Q2WK
     Route: 058
     Dates: start: 20151125, end: 20151209
  9. DARBEPOETIN ALFA [Suspect]
     Active Substance: DARBEPOETIN ALFA
     Dosage: 240 MICROGRAM, Q2WK
     Route: 058
     Dates: start: 20160106, end: 20161109
  10. METHYCOBAL [Concomitant]
     Active Substance: METHYLCOBALAMIN
     Dosage: 1000 MUG, UNK
     Route: 048
     Dates: end: 20170606
  11. CALBLOCK [Concomitant]
     Active Substance: AZELNIDIPINE
     Dosage: 8 MG
     Route: 048
     Dates: start: 20160104, end: 20170606
  12. CEFTRIAXON [Concomitant]
     Active Substance: CEFTRIAXONE
     Dosage: 2 G, UNK
     Route: 065
     Dates: start: 20170630, end: 20170710
  13. DARBEPOETIN ALFA [Suspect]
     Active Substance: DARBEPOETIN ALFA
     Dosage: 240 MICROGRAM
     Route: 058
     Dates: start: 20150713, end: 20150713
  14. DARBEPOETIN ALFA [Suspect]
     Active Substance: DARBEPOETIN ALFA
     Dosage: 240 MICROGRAM, Q4WK
     Route: 058
     Dates: start: 20150722, end: 20150916
  15. DARBEPOETIN ALFA [Suspect]
     Active Substance: DARBEPOETIN ALFA
     Dosage: 240 MICROGRAM
     Route: 058
     Dates: start: 20151221, end: 20151221
  16. MEROPEN [Concomitant]
     Active Substance: MEROPENEM
     Dosage: 0.5 G, UNK
     Route: 065
     Dates: start: 20170607, end: 20170613
  17. DARBEPOETIN ALFA [Suspect]
     Active Substance: DARBEPOETIN ALFA
     Dosage: 240 MICROGRAM
     Route: 058
     Dates: start: 20170704, end: 20170704
  18. DOMPERIDON [Concomitant]
     Active Substance: DOMPERIDONE
     Dosage: 10 MG
     Route: 048
     Dates: start: 20151026, end: 20170606
  19. DARBEPOETIN ALFA [Suspect]
     Active Substance: DARBEPOETIN ALFA
     Dosage: 240 MICROGRAM
     Route: 058
     Dates: start: 20151007, end: 20151007
  20. DARBEPOETIN ALFA [Suspect]
     Active Substance: DARBEPOETIN ALFA
     Dosage: 240 MICROGRAM
     Route: 058
     Dates: start: 20170206, end: 20170206
  21. CALBLOCK [Concomitant]
     Active Substance: AZELNIDIPINE
     Indication: HYPERTENSION
     Dosage: 16 MG
     Route: 048
     Dates: end: 20150727
  22. NATRIX [Concomitant]
     Active Substance: INDAPAMIDE
     Indication: HYPERTENSION
     Dosage: 1 MG
     Route: 048
     Dates: start: 20150615, end: 20150709
  23. URIEF [Concomitant]
     Active Substance: SILODOSIN
     Indication: BENIGN PROSTATIC HYPERPLASIA
     Dosage: 4 MG
     Route: 048
  24. REBAMIPIDE [Concomitant]
     Active Substance: REBAMIPIDE
     Dosage: 300 MG
     Route: 048
     Dates: start: 20150907, end: 20170606
  25. OMEPRAZOLE. [Concomitant]
     Active Substance: OMEPRAZOLE
     Dosage: 20 MG, UNK
     Route: 048
     Dates: end: 20150905
  26. SODIUM BICARBONATE. [Concomitant]
     Active Substance: SODIUM BICARBONATE
     Dosage: 3 G, UNK
     Route: 048
     Dates: start: 20150831, end: 20170606
  27. TAKECAB [Concomitant]
     Active Substance: VONOPRAZAN FUMURATE
     Dosage: 10 MG
     Route: 048
     Dates: start: 20160613
  28. LYRICA [Concomitant]
     Active Substance: PREGABALIN
     Indication: LUMBAR SPINAL STENOSIS
     Dosage: 25 MG, UNK
     Route: 048
     Dates: start: 20161019, end: 20170606
  29. SULBACILLIN [Concomitant]
     Active Substance: AMPICILLIN SODIUM\SULBACTAM SODIUM
     Dosage: 2 G, UNK
     Route: 065
     Dates: start: 20170614, end: 20170619
  30. DARBEPOETIN ALFA [Suspect]
     Active Substance: DARBEPOETIN ALFA
     Indication: MYELODYSPLASTIC SYNDROME
     Dosage: 240 MICROGRAM, Q2WK
     Route: 058
     Dates: start: 20150522, end: 20150605
  31. DARBEPOETIN ALFA [Suspect]
     Active Substance: DARBEPOETIN ALFA
     Dosage: 240 MICROGRAM
     Route: 058
     Dates: start: 20151028, end: 20151028
  32. FOLIAMIN [Concomitant]
     Active Substance: FOLIC ACID
     Dosage: 5 MG
     Route: 048
     Dates: start: 20151214, end: 20170606
  33. KALIMATE [Concomitant]
     Active Substance: CALCIUM POLYSTYRENE SULFONATE
     Dosage: 5 G, UNK
     Route: 048
     Dates: start: 20160905, end: 20170606

REACTIONS (4)
  - Death [Fatal]
  - Pyelonephritis [Recovering/Resolving]
  - Hyperkalaemia [Recovering/Resolving]
  - Acute kidney injury [Not Recovered/Not Resolved]

NARRATIVE: CASE EVENT DATE: 20170606
